FAERS Safety Report 6834616-X (Version None)
Quarter: 2010Q3

REPORT INFORMATION
  Report Type: 
  Country: None (occurrence: None)
  Receive Date: 20100712
  Receipt Date: 20070609
  Transmission Date: 20110219
  Serious: No
  Sender: FDA-Public Use
  Company Number: US-PFIZER INC-2007029908

PATIENT
  Age: 39 Year
  Sex: Male
  Weight: 92.53 kg

DRUGS (3)
  1. CHANTIX [Suspect]
     Indication: SMOKING CESSATION THERAPY
     Dates: start: 20070301
  2. TYLENOL PM [Concomitant]
  3. NEOSPORIN [Concomitant]

REACTIONS (1)
  - URTICARIA [None]
